FAERS Safety Report 8198924-5 (Version None)
Quarter: 2012Q1

REPORT INFORMATION
  Report Type: 
  Country: None (occurrence: None)
  Receive Date: 20120309
  Receipt Date: 20120221
  Transmission Date: 20120608
  Serious: Yes (Other)
  Sender: FDA-Public Use
  Company Number: US-AMGEN-USASP2011034606

PATIENT
  Age: 83 Year
  Sex: Female
  Weight: 70.6 kg

DRUGS (1)
  1. PROLIA [Suspect]
     Indication: OSTEOPOROSIS POSTMENOPAUSAL
     Dosage: 60 MG, Q6MO
     Dates: start: 20110328

REACTIONS (5)
  - FEELING HOT [None]
  - ATRIAL FIBRILLATION [None]
  - BACK PAIN [None]
  - ARTHRALGIA [None]
  - PRURITUS [None]
